FAERS Safety Report 14822580 (Version 5)
Quarter: 2019Q3

REPORT INFORMATION
  Report Type: Spontaneous
  Country: US (occurrence: US)
  Receive Date: 20180427
  Receipt Date: 20190730
  Transmission Date: 20191004
  Serious: Yes (Hospitalization, Other)
  Sender: FDA-Public Use
  Company Number: US-ASTRAZENECA-2018SE50351

PATIENT
  Age: 15547 Day
  Sex: Female
  Weight: 72.6 kg

DRUGS (21)
  1. NEXIUM [Suspect]
     Active Substance: ESOMEPRAZOLE MAGNESIUM
     Route: 048
  2. NEXIUM 24HR [Suspect]
     Active Substance: ESOMEPRAZOLE MAGNESIUM
     Route: 048
  3. PROTONIX [Suspect]
     Active Substance: PANTOPRAZOLE SODIUM
     Route: 065
  4. LINZESS [Concomitant]
     Active Substance: LINACLOTIDE
  5. METOCLOPRAMIDE. [Concomitant]
     Active Substance: METOCLOPRAMIDE
  6. CLONIDINE. [Concomitant]
     Active Substance: CLONIDINE
     Indication: HYPERTENSION
     Dates: start: 2014, end: 2019
  7. PRILOSEC OTC [Suspect]
     Active Substance: OMEPRAZOLE MAGNESIUM
     Route: 048
  8. METOPROLOL. [Concomitant]
     Active Substance: METOPROLOL
  9. TAMIFLU [Concomitant]
     Active Substance: OSELTAMIVIR PHOSPHATE
  10. PEPCID [Concomitant]
     Active Substance: FAMOTIDINE
  11. DEXILANT [Suspect]
     Active Substance: DEXLANSOPRAZOLE
     Route: 065
  12. PREVACID 24 HR [Suspect]
     Active Substance: LANSOPRAZOLE
     Route: 065
  13. LOSARTAN POTASSIUM. [Concomitant]
     Active Substance: LOSARTAN POTASSIUM
  14. ISONIAZID. [Concomitant]
     Active Substance: ISONIAZID
  15. PRILOSEC [Suspect]
     Active Substance: OMEPRAZOLE MAGNESIUM
     Route: 048
  16. LYRICA [Concomitant]
     Active Substance: PREGABALIN
  17. HYDRALAZINE [Concomitant]
     Active Substance: HYDRALAZINE HYDROCHLORIDE
     Indication: HYPERTENSION
     Dates: start: 2014, end: 2019
  18. METOPROLOL. [Concomitant]
     Active Substance: METOPROLOL
     Indication: HYPERTENSION
     Dates: start: 2014, end: 2019
  19. VITAMIN B6 [Concomitant]
     Active Substance: PYRIDOXINE HYDROCHLORIDE
  20. ZANTAC [Concomitant]
     Active Substance: RANITIDINE HYDROCHLORIDE
  21. PREVACID [Suspect]
     Active Substance: LANSOPRAZOLE
     Route: 065

REACTIONS (5)
  - Renal failure [Not Recovered/Not Resolved]
  - Chronic kidney disease [Unknown]
  - End stage renal disease [Unknown]
  - Rebound acid hypersecretion [Unknown]
  - Nephropathy [Unknown]

NARRATIVE: CASE EVENT DATE: 20141104
